FAERS Safety Report 24986370 (Version 3)
Quarter: 2025Q1

REPORT INFORMATION
  Report Type: Report from Study
  Country: US (occurrence: US)
  Receive Date: 20250219
  Receipt Date: 20250306
  Transmission Date: 20250409
  Serious: Yes (Hospitalization, Other)
  Sender: ABBVIE
  Company Number: US-ABBVIE-6122415

PATIENT
  Age: 75 Year
  Sex: Female

DRUGS (1)
  1. HUMIRA [Suspect]
     Active Substance: ADALIMUMAB
     Indication: Product used for unknown indication
     Route: 058
     Dates: start: 202303

REACTIONS (16)
  - Intestinal haemorrhage [Not Recovered/Not Resolved]
  - Condition aggravated [Not Recovered/Not Resolved]
  - Loss of personal independence in daily activities [Unknown]
  - Vomiting [Unknown]
  - Haemorrhage [Unknown]
  - Pneumonia [Unknown]
  - Malaise [Not Recovered/Not Resolved]
  - Cerebral haemorrhage [Unknown]
  - Abdominal pain upper [Unknown]
  - Constipation [Unknown]
  - Nausea [Unknown]
  - Fall [Unknown]
  - Thrombosis [Unknown]
  - Cellulitis [Unknown]
  - Head injury [Unknown]
  - Vascular procedure complication [Unknown]
